FAERS Safety Report 16313016 (Version 1)
Quarter: 2019Q2

REPORT INFORMATION
  Report Type: Spontaneous
  Country: US (occurrence: US)
  Receive Date: 20190515
  Receipt Date: 20190515
  Transmission Date: 20190711
  Serious: No
  Sender: FDA-Public Use
  Company Number: US-009507513-1905USA003017

PATIENT
  Sex: Female
  Weight: 117.91 kg

DRUGS (1)
  1. NEXPLANON [Suspect]
     Active Substance: ETONOGESTREL
     Dosage: 1 UNIT
     Route: 059
     Dates: start: 20190430

REACTIONS (3)
  - Implant site cellulitis [Unknown]
  - Implant site infection [Unknown]
  - Implant site erythema [Unknown]

NARRATIVE: CASE EVENT DATE: 2019
